FAERS Safety Report 7313375-0 (Version None)
Quarter: 2011Q1

REPORT INFORMATION
  Report Type: 
  Country: None (occurrence: None)
  Receive Date: 20110225
  Receipt Date: 20100907
  Transmission Date: 20110831
  Serious: No
  Sender: FDA-Public Use
  Company Number: US-MYLANLABS-2010S1016561

PATIENT
  Age: 75 Year
  Sex: Female

DRUGS (1)
  1. HYDROCHLOROTHIAZIDE [Suspect]
     Route: 048
     Dates: start: 20100701

REACTIONS (6)
  - MUSCLE SPASMS [None]
  - NAUSEA [None]
  - RASH [None]
  - PARAESTHESIA [None]
  - BLOOD POTASSIUM INCREASED [None]
  - BACK DISORDER [None]
